FAERS Safety Report 5385040-0 (Version None)
Quarter: 2007Q3

REPORT INFORMATION
  Report Type: 
  Country: None (occurrence: None)
  Receive Date: 20070712
  Receipt Date: 20070703
  Transmission Date: 20080115
  Serious: Yes (Other)
  Sender: FDA-Public Use
  Company Number: PHBS2007JP11336

PATIENT
  Age: 1 Year
  Sex: Female

DRUGS (1)
  1. ZADITEN [Suspect]
     Indication: PRURITUS
     Dosage: 0.4 G/DAY
     Route: 048
     Dates: start: 20070629

REACTIONS (1)
  - AGITATION [None]
